FAERS Safety Report 5404958-3 (Version None)
Quarter: 2007Q3

REPORT INFORMATION
  Report Type: 
  Country: None (occurrence: None)
  Receive Date: 20070801
  Receipt Date: 20070717
  Transmission Date: 20080115
  Serious: Yes (Death)
  Sender: FDA-Public Use
  Company Number: 8024407

PATIENT
  Age: 70 Year
  Sex: Female

DRUGS (2)
  1. KEPPRA [Suspect]
     Dosage: 500 MG 2/D
     Dates: end: 20070606
  2. KEPPRA [Suspect]
     Dosage: 750 MG 2/D

REACTIONS (1)
  - BALANCE DISORDER [None]
